FAERS Safety Report 14333780 (Version 1)
Quarter: 2017Q4

REPORT INFORMATION
  Report Type: Spontaneous
  Country: US (occurrence: US)
  Receive Date: 20171227
  Receipt Date: 20171227
  Transmission Date: 20180321
  Serious: Yes (Hospitalization)
  Sender: FDA-Public Use
  Company Number: None

PATIENT
  Age: 52 Year
  Sex: Female
  Weight: 102.51 kg

DRUGS (1)
  1. GENOTROPIN [Suspect]
     Active Substance: SOMATROPIN
     Indication: HYPOPITUITARISM
     Dosage: 5MG INJECT 0.3MGDAILY SUBCUTANEOUSLY
     Route: 058
     Dates: start: 20130901, end: 20170901

REACTIONS (4)
  - Impaired work ability [None]
  - Pneumonia [None]
  - Drug dose omission [None]
  - Nephrolithiasis [None]

NARRATIVE: CASE EVENT DATE: 20170810
